FAERS Safety Report 19687251 (Version 1)
Quarter: 2021Q3

REPORT INFORMATION
  Report Type: Report from Study
  Country: JP (occurrence: JP)
  Receive Date: 20210811
  Receipt Date: 20210811
  Transmission Date: 20211014
  Serious: Yes (Other)
  Sender: FDA-Public Use
  Company Number: JP-BRISTOL-MYERS SQUIBB COMPANY-BMS-2017-020789

PATIENT
  Age: 74 Year
  Sex: Female
  Weight: 41 kg

DRUGS (16)
  1. NIVOLUMAB [Suspect]
     Active Substance: NIVOLUMAB
     Dosage: 2 MILLIGRAM/KILOGRAM
     Route: 065
     Dates: start: 20160721
  2. NIVOLUMAB [Suspect]
     Active Substance: NIVOLUMAB
     Dosage: 2 MILLIGRAM/KILOGRAM
     Route: 065
     Dates: start: 20160818
  3. NIVOLUMAB [Suspect]
     Active Substance: NIVOLUMAB
     Dosage: 2 MILLIGRAM/KILOGRAM
     Route: 065
     Dates: start: 20161222
  4. NIVOLUMAB [Suspect]
     Active Substance: NIVOLUMAB
     Dosage: 2 MILLIGRAM/KILOGRAM
     Route: 065
     Dates: start: 20170322
  5. NIVOLUMAB [Suspect]
     Active Substance: NIVOLUMAB
     Dosage: 2 MILLIGRAM/KILOGRAM
     Route: 065
     Dates: start: 20170525
  6. NIVOLUMAB [Suspect]
     Active Substance: NIVOLUMAB
     Dosage: 240 MILLIGRAM, Q3WK
     Route: 065
  7. NIVOLUMAB [Suspect]
     Active Substance: NIVOLUMAB
     Dosage: 2 MILLIGRAM/KILOGRAM
     Route: 065
     Dates: start: 20160929
  8. NIVOLUMAB [Suspect]
     Active Substance: NIVOLUMAB
     Indication: MALIGNANT MELANOMA
     Dosage: 2 MILLIGRAM/KILOGRAM
     Route: 065
     Dates: start: 20160609
  9. NIVOLUMAB [Suspect]
     Active Substance: NIVOLUMAB
     Dosage: 2 MILLIGRAM/KILOGRAM
     Route: 065
     Dates: start: 20170112
  10. NIVOLUMAB [Suspect]
     Active Substance: NIVOLUMAB
     Dosage: 2 MILLIGRAM/KILOGRAM
     Route: 065
     Dates: start: 20170202
  11. NIVOLUMAB [Suspect]
     Active Substance: NIVOLUMAB
     Dosage: 2 MILLIGRAM/KILOGRAM
     Route: 065
     Dates: start: 20170529
  12. NIVOLUMAB [Suspect]
     Active Substance: NIVOLUMAB
     Dosage: 2 MILLIGRAM/KILOGRAM
     Route: 065
     Dates: start: 20170412
  13. NIVOLUMAB [Suspect]
     Active Substance: NIVOLUMAB
     Dosage: 2 MILLIGRAM/KILOGRAM
     Route: 065
     Dates: start: 20170508
  14. NIVOLUMAB [Suspect]
     Active Substance: NIVOLUMAB
     Dosage: 2 MILLIGRAM/KILOGRAM
     Route: 065
     Dates: start: 20160630
  15. NIVOLUMAB [Suspect]
     Active Substance: NIVOLUMAB
     Dosage: 2 MILLIGRAM/KILOGRAM
     Route: 065
     Dates: start: 20160908
  16. NIVOLUMAB [Suspect]
     Active Substance: NIVOLUMAB
     Dosage: 2 MILLIGRAM/KILOGRAM
     Route: 065
     Dates: start: 20161110

REACTIONS (3)
  - Thrombotic microangiopathy [Recovering/Resolving]
  - Off label use [Unknown]
  - Renal disorder [Not Recovered/Not Resolved]

NARRATIVE: CASE EVENT DATE: 20161020
